FAERS Safety Report 6197945-1 (Version None)
Quarter: 2009Q2

REPORT INFORMATION
  Report Type: 
  Country: None (occurrence: None)
  Receive Date: 20090521
  Receipt Date: 20090514
  Transmission Date: 20091009
  Serious: Yes (Hospitalization)
  Sender: FDA-Public Use
  Company Number: B0559236A

PATIENT
  Sex: Female

DRUGS (7)
  1. RELENZA [Suspect]
     Indication: INFLUENZA
     Dosage: 5MG PER DAY
     Route: 055
     Dates: start: 20090205, end: 20090206
  2. UNKNOWN DRUG [Suspect]
     Indication: INFLUENZA
     Route: 048
     Dates: start: 20090205, end: 20090206
  3. IBUPROFEN [Suspect]
     Indication: ANTIPYRESIS
     Dosage: 100MG PER DAY
     Route: 048
     Dates: start: 20090205, end: 20090206
  4. HUSTAZOL [Concomitant]
     Indication: COUGH
     Dosage: 10MG PER DAY
     Route: 048
     Dates: start: 20090205
  5. LYSOZYME HYDROCHLORIDE [Concomitant]
     Indication: PRODUCTIVE COUGH
     Dosage: 90MG PER DAY
     Route: 048
     Dates: start: 20090205
  6. HISPORAN [Concomitant]
     Indication: HYPERSENSITIVITY
     Dosage: 3MG PER DAY
     Route: 048
     Dates: start: 20090205
  7. OSELTAMIVIR [Concomitant]

REACTIONS (8)
  - ABNORMAL BEHAVIOUR [None]
  - ALTERED STATE OF CONSCIOUSNESS [None]
  - DELIRIUM FEBRILE [None]
  - DIARRHOEA [None]
  - DISORIENTATION [None]
  - ENCEPHALITIS [None]
  - MENINGITIS [None]
  - NEUROSIS [None]
